FAERS Safety Report 21172152 (Version 3)
Quarter: 2022Q4

REPORT INFORMATION
  Report Type: Report from Study
  Country: IE (occurrence: IE)
  Receive Date: 20220804
  Receipt Date: 20221023
  Transmission Date: 20230113
  Serious: Yes (Hospitalization)
  Sender: FDA-Public Use
  Company Number: IE-NOVARTISPH-NVSC2022IE173067

PATIENT
  Age: 57 Year
  Sex: Female

DRUGS (3)
  1. COSENTYX [Suspect]
     Active Substance: SECUKINUMAB
     Indication: Axial spondyloarthritis
     Dosage: 150 MG, QW
     Route: 058
     Dates: start: 20220711, end: 20220726
  2. COSENTYX [Suspect]
     Active Substance: SECUKINUMAB
     Dosage: 150 MG (WEEKLY X 5 THEN 150MGS MONTHLY)
     Route: 058
     Dates: start: 20221018
  3. ISONIAZID [Concomitant]
     Active Substance: ISONIAZID
     Indication: Product used for unknown indication
     Dosage: UNK (TAKING ISONIAZIDE BEFORE COSENTYX TREATMENT)
     Route: 048

REACTIONS (1)
  - Hepatic enzyme increased [Recovered/Resolved]

NARRATIVE: CASE EVENT DATE: 20220722
